FAERS Safety Report 7618929-X (Version None)
Quarter: 2011Q3

REPORT INFORMATION
  Report Type: 
  Country: None (occurrence: None)
  Receive Date: 20110718
  Receipt Date: 20110704
  Transmission Date: 20111222
  Serious: Yes (Hospitalization)
  Sender: FDA-Public Use
  Company Number: JP-AMGEN-JPNCT2011021480

PATIENT
  Age: 62 Year
  Sex: Female
  Weight: 43 kg

DRUGS (12)
  1. PANITUMUMAB [Suspect]
     Indication: COLORECTAL CANCER
     Dosage: 6 MG/KG, Q2WK
     Route: 041
     Dates: start: 20101108, end: 20101124
  2. FLUOROURACIL [Concomitant]
     Indication: COLORECTAL CANCER
     Route: 040
     Dates: start: 20101108
  3. FLUOROURACIL [Concomitant]
     Route: 041
     Dates: start: 20101108
  4. PANITUMUMAB [Suspect]
     Dosage: 6 MG/KG, Q2WK
     Route: 041
     Dates: start: 20101222, end: 20110323
  5. LEUCOVORIN CALCIUM [Concomitant]
     Indication: COLORECTAL CANCER
     Route: 041
     Dates: start: 20101108
  6. DECADRON [Concomitant]
     Dosage: UNK
     Route: 042
  7. MINOCYCLINE HCL [Concomitant]
     Dosage: UNK
     Route: 048
  8. LASIX [Concomitant]
     Dosage: UNK
     Route: 048
  9. IRINOTECAN HCL [Concomitant]
     Indication: COLORECTAL CANCER
     Route: 041
     Dates: start: 20101108
  10. OXINORM [Concomitant]
     Dosage: UNK
     Route: 048
  11. KYTRIL [Concomitant]
     Dosage: UNK
     Route: 042
  12. OXYCONTIN [Concomitant]
     Dosage: UNK
     Route: 048

REACTIONS (6)
  - PULMONARY ARTERY THROMBOSIS [None]
  - HYPOKALAEMIA [None]
  - MALAISE [None]
  - NEUTROPHIL COUNT DECREASED [None]
  - HYPOMAGNESAEMIA [None]
  - HYPOCALCAEMIA [None]
